FAERS Safety Report 16297458 (Version 3)
Quarter: 2019Q2

REPORT INFORMATION
  Report Type: Spontaneous
  Country: US (occurrence: US)
  Receive Date: 20190510
  Receipt Date: 20190624
  Transmission Date: 20190711
  Serious: Yes (Other)
  Sender: FDA-Public Use
  Company Number: US-PFIZER INC-2019196929

PATIENT
  Age: 51 Year
  Sex: Female

DRUGS (1)
  1. IBRANCE [Suspect]
     Active Substance: PALBOCICLIB
     Indication: BREAST CANCER FEMALE
     Dosage: 100 MG, UNK

REACTIONS (6)
  - Back pain [Unknown]
  - Pain [Unknown]
  - Myocardial infarction [Unknown]
  - Dyspnoea [Unknown]
  - Fatigue [Unknown]
  - Gallbladder disorder [Unknown]
